FAERS Safety Report 9454281 (Version 1)
Quarter: 2013Q3

REPORT INFORMATION
  Report Type: Spontaneous
  Country: US (occurrence: US)
  Receive Date: 20130812
  Receipt Date: 20130812
  Transmission Date: 20140515
  Serious: Yes (Other)
  Sender: FDA-Public Use
  Company Number: US-TEVA-370348USA

PATIENT
  Sex: Male

DRUGS (2)
  1. METOCLOPRAMIDE [Suspect]
  2. REGLAN [Suspect]

REACTIONS (5)
  - Tardive dyskinesia [Unknown]
  - Extrapyramidal disorder [Unknown]
  - Muscle twitching [Unknown]
  - Dyskinesia [Unknown]
  - Eye movement disorder [Unknown]
